FAERS Safety Report 10186334 (Version 1)
Quarter: 2014Q2

REPORT INFORMATION
  Report Type: Spontaneous
  Country: US (occurrence: US)
  Receive Date: 20140521
  Receipt Date: 20140521
  Transmission Date: 20141212
  Serious: No
  Sender: FDA-Public Use
  Company Number: US-ASTRAZENECA-2014SE21985

PATIENT
  Age: 10 Year
  Sex: Male
  Weight: 49.9 kg

DRUGS (2)
  1. PULMICORT FLEXHALER [Suspect]
     Dosage: 180 MCG, 1 PUFF DAILY
     Route: 055
  2. ALBUTEROL INHALER [Concomitant]
     Dosage: PRN

REACTIONS (7)
  - Asthma [Unknown]
  - Dyspnoea [Unknown]
  - Chest pain [Unknown]
  - Fatigue [Unknown]
  - Headache [Unknown]
  - Circumstance or information capable of leading to medication error [Unknown]
  - Intentional product misuse [Unknown]
